FAERS Safety Report 5829672-1 (Version None)
Quarter: 2008Q3

REPORT INFORMATION
  Report Type: 
  Country: None (occurrence: None)
  Receive Date: 20080729
  Receipt Date: 20080716
  Transmission Date: 20090109
  Serious: Yes (Other)
  Sender: FDA-Public Use
  Company Number: CHNY2008JP02840

PATIENT
  Age: 75 Year
  Sex: Female

DRUGS (4)
  1. NICOTINELL TTS(NCH) (NICOTINE) TRANS-THERAPEUTIC-SYSTEM [Suspect]
     Indication: SMOKING CESSATION THERAPY
     Dosage: 14 MG, QD, TRANSDERMAL
     Route: 062
     Dates: start: 20080621, end: 20080621
  2. PAXIL [Concomitant]
  3. ONEALFA (ALFACALCIDOL) [Concomitant]
  4. HERBESSER ^DELTA^ (DILTIAZEM HYDROCHLORIDE) [Concomitant]

REACTIONS (1)
  - HALLUCINATION [None]
